FAERS Safety Report 7298506-3 (Version None)
Quarter: 2011Q1

REPORT INFORMATION
  Report Type: 
  Country: None (occurrence: None)
  Receive Date: 20110217
  Receipt Date: 20110214
  Transmission Date: 20110831
  Serious: Yes (Other)
  Sender: FDA-Public Use
  Company Number: IT-JNJFOC-20110204262

PATIENT
  Age: 86 Year
  Sex: Male

DRUGS (2)
  1. LEVOFLOXACIN [Suspect]
     Route: 048
  2. LEVOFLOXACIN [Suspect]
     Indication: BRONCHOPNEUMONIA
     Route: 042

REACTIONS (2)
  - TENDON RUPTURE [None]
  - HAEMATOMA [None]
